FAERS Safety Report 17938694 (Version 1)
Quarter: 2020Q2

REPORT INFORMATION
  Report Type: Spontaneous
  Country: DE (occurrence: DE)
  Receive Date: 20200625
  Receipt Date: 20200625
  Transmission Date: 20200714
  Serious: Yes (Hospitalization)
  Sender: FDA-Public Use
  Company Number: DE-TEVA-2020-DE-1790652

PATIENT
  Age: 84 Year
  Sex: Female
  Weight: 60 kg

DRUGS (15)
  1. MACROGOL [Suspect]
     Active Substance: POLYETHYLENE GLYCOLS
     Dosage: NEED, BAG
  2. TORASEMID [Suspect]
     Active Substance: TORSEMIDE
     Dosage: 30 MILLIGRAM DAILY; 10 MG, 2-1-0-0
  3. CANDESARTAN. [Concomitant]
     Active Substance: CANDESARTAN
     Dosage: 4 MILLIGRAM DAILY; 1-0-0-0
  4. LANTUS 100EINHEITEN/ML [Concomitant]
     Dosage: 100 IU / ML, 0-0-0-14
  5. PANTOPRAZOL [Concomitant]
     Active Substance: PANTOPRAZOLE SODIUM
     Dosage: 20 MILLIGRAM DAILY;  1-0-0-0
  6. PREDNISOLON [Concomitant]
     Active Substance: PREDNISOLONE
     Dosage: 2 MILLIGRAM DAILY; 1-0-0-0
  7. FENISTIL DRAGEES [Concomitant]
     Dosage: 1 MG, NEED
  8. DEKRISTOL 1000I.E. [Concomitant]
     Dosage: 1000 IU (INTERNATIONAL UNIT) DAILY; 1-0-0-0
  9. ATARAX [Concomitant]
     Active Substance: HYDROXYZINE HYDROCHLORIDE
     Dosage: 50 MILLIGRAM DAILY; 1-0-1-0
  10. QUETIAPIN [Concomitant]
     Active Substance: QUETIAPINE
     Dosage: 50 MILLIGRAM DAILY; 1-0-1-0
  11. DAPSON [Concomitant]
     Active Substance: DAPSONE
     Dosage: 100 MILLIGRAM DAILY; 1-0-1-0
  12. BISOPROLOL [Concomitant]
     Active Substance: BISOPROLOL
     Dosage: 10 MILLIGRAM DAILY; 1-0-1-0
  13. ZOLPIDEM [Concomitant]
     Active Substance: ZOLPIDEM TARTRATE
     Dosage: 10 MG, NEED
  14. TILIDINE/NALOXONE [Concomitant]
     Active Substance: NALOXONE HYDROCHLORIDE\TILIDINE HYDROCHLORIDE
     Dosage: 4 | 50 MG, NEED
  15. ACTRAPID [Concomitant]
     Active Substance: INSULIN HUMAN
     Dosage: 100 IU / ML, ACCORDING TO THE SCHEME

REACTIONS (6)
  - General physical health deterioration [Unknown]
  - Pruritus [Unknown]
  - Diarrhoea [Unknown]
  - Decreased appetite [Unknown]
  - Dehydration [Unknown]
  - Micturition frequency decreased [Unknown]
